FAERS Safety Report 4657806-3 (Version None)
Quarter: 2005Q2

REPORT INFORMATION
  Report Type: 
  Country: None (occurrence: None)
  Receive Date: 20050510
  Receipt Date: 20040219
  Transmission Date: 20051028
  Serious: Yes (Hospitalization)
  Sender: FDA-Public Use
  Company Number: US-MERCK-0402USA01451

PATIENT
  Age: 43 Year
  Sex: Male
  Weight: 93 kg

DRUGS (2)
  1. VIOXX [Suspect]
     Indication: BACK PAIN
     Route: 048
     Dates: start: 20030923, end: 20030923
  2. VIOXX [Suspect]
     Route: 048
     Dates: start: 20030926, end: 20030926

REACTIONS (25)
  - ANXIETY [None]
  - BARRETT'S OESOPHAGUS [None]
  - BLOOD PRESSURE INCREASED [None]
  - BRONCHITIS [None]
  - CHEST PAIN [None]
  - DIARRHOEA [None]
  - DRUG HYPERSENSITIVITY [None]
  - EMOTIONAL DISTRESS [None]
  - EROSIVE OESOPHAGITIS [None]
  - FEAR [None]
  - GASTRITIS EROSIVE [None]
  - GASTROINTESTINAL MOTILITY DISORDER [None]
  - GASTROOESOPHAGEAL REFLUX DISEASE [None]
  - HEPATIC CYST [None]
  - HIATUS HERNIA [None]
  - HIGH DENSITY LIPOPROTEIN DECREASED [None]
  - HYPERSENSITIVITY [None]
  - JOINT SPRAIN [None]
  - METAL POISONING [None]
  - MINERAL METABOLISM DISORDER [None]
  - MYOCARDIAL INFARCTION [None]
  - PANIC ATTACK [None]
  - POLYCYTHAEMIA [None]
  - TACHYCARDIA [None]
  - WEIGHT DECREASED [None]
